FAERS Safety Report 9519211 (Version 1)
Quarter: 2013Q1

REPORT INFORMATION
  Report Type: Spontaneous
  Country: US (occurrence: None)
  Receive Date: 20130305
  Receipt Date: 20130305
  Transmission Date: 20140127
  Serious: Yes (Disabling)
  Sender: FDA-Public Use
  Company Number: 163-21880-12111212

PATIENT
  Age: 56 Year
  Sex: Male
  Weight: 95.26 kg

DRUGS (11)
  1. REVLIMID (LENALIDOMIDE) (25 MILLIGRAM, CAPSULES) [Suspect]
     Indication: PLASMA CELL MYELOMA
     Dosage: 25 MG, 21 IN 21 D, PO
     Route: 048
     Dates: start: 20121017
  2. ASPIRIN (ACETYLSALICYLIC ACID) (TABLETS) [Concomitant]
  3. MULTIVITAMINS (MULTIVITAMINS) (TABLETS)? [Concomitant]
  4. PROCHLORPERAZINE (PROCHLORPERAZINE) (UNKNOWN)? [Concomitant]
  5. TYLENOL (PARACETAMOL) (TABLETS) [Concomitant]
  6. ULTRAM ER (TRAMADOL HYDROCHLORIDE) (TABLETS) [Concomitant]
  7. VALTREX (VALACICLOVIR HYDROCHLORIDE) (TABLETS) [Concomitant]
  8. ZOMETA (ZOLEDRONIC ACID) (UNKNOWN) [Concomitant]
  9. CARFILZOMIB (CARFILZOMIB) (UNKNOWN)? [Concomitant]
  10. ATIVAN (LORAZEPAM) [Concomitant]
  11. DEXAMETHASONE (DEXAMETHASONE) (UNKNOWN) [Concomitant]

REACTIONS (2)
  - Rash generalised [None]
  - Gastric disorder [None]
